FAERS Safety Report 5850609-3 (Version None)
Quarter: 2008Q3

REPORT INFORMATION
  Report Type: 
  Country: None (occurrence: None)
  Receive Date: 20080820
  Receipt Date: 20080808
  Transmission Date: 20090109
  Serious: Yes (Hospitalization)
  Sender: FDA-Public Use
  Company Number: FR-JNJFOC-20080801666

PATIENT
  Sex: Female

DRUGS (7)
  1. IMODIUM [Suspect]
     Indication: DRUG USE FOR UNKNOWN INDICATION
     Route: 048
  2. TEGRETOL [Suspect]
     Indication: EPILEPSY
     Route: 048
  3. PROPOXYPHENE HCL AND ACETAMINOPHEN [Suspect]
     Indication: DRUG USE FOR UNKNOWN INDICATION
     Route: 048
  4. DOLIPRANE [Suspect]
     Indication: DRUG USE FOR UNKNOWN INDICATION
     Dosage: 1 TO 4 TABS A DAY
     Route: 048
  5. TOPIRAMATE [Concomitant]
     Indication: EPILEPSY
  6. ATEPSAL [Concomitant]
     Indication: EPILEPSY
  7. RIVOTRIL [Concomitant]
     Indication: EPILEPSY

REACTIONS (2)
  - MULTIPLE DRUG OVERDOSE [None]
  - PSYCHOMOTOR RETARDATION [None]
